FAERS Safety Report 9501642 (Version 1)
Quarter: 2013Q3

REPORT INFORMATION
  Report Type: Spontaneous
  Country: US (occurrence: US)
  Receive Date: 20130905
  Receipt Date: 20130905
  Transmission Date: 20140515
  Serious: No
  Sender: FDA-Public Use
  Company Number: US-BAYER-2013-107533

PATIENT
  Sex: Female

DRUGS (3)
  1. MIDOL EXTENDED RELIEF CAPLET [Suspect]
     Indication: PAIN
     Dosage: 2 DF, UNK
  2. ADVIL [Concomitant]
  3. IBUPROFEN [Concomitant]

REACTIONS (1)
  - Drug ineffective [None]
